FAERS Safety Report 5026549-9 (Version None)
Quarter: 2006Q2

REPORT INFORMATION
  Report Type: 
  Country: None (occurrence: None)
  Receive Date: 20060615
  Receipt Date: 20060606
  Transmission Date: 20061013
  Serious: Yes (Hospitalization)
  Sender: FDA-Public Use
  Company Number: US-AVENTIS-200615097US

PATIENT
  Age: 49 Year
  Sex: Male
  Weight: 57 kg

DRUGS (6)
  1. KETEK [Suspect]
     Indication: SINUSITIS
     Route: 048
  2. KETEK [Suspect]
     Indication: RESPIRATORY DISORDER
     Route: 048
  3. SINGULAIR [Concomitant]
  4. PULMICORT [Concomitant]
     Dosage: DOSE: 2 PUFFS
  5. BIAXIN [Concomitant]
  6. ZITHROMAX [Concomitant]

REACTIONS (9)
  - ABDOMINAL PAIN [None]
  - ALANINE AMINOTRANSFERASE INCREASED [None]
  - ASPARTATE AMINOTRANSFERASE INCREASED [None]
  - BLOOD BILIRUBIN INCREASED [None]
  - CHILLS [None]
  - GAMMA-GLUTAMYLTRANSFERASE INCREASED [None]
  - HEPATITIS [None]
  - NAUSEA [None]
  - VOMITING [None]
